FAERS Safety Report 10246618 (Version 1)
Quarter: 2014Q1

REPORT INFORMATION
  Report Type: Spontaneous
  Country: US (occurrence: None)
  Receive Date: 20140306
  Receipt Date: 20140306
  Transmission Date: 20141002
  Serious: Yes (Hospitalization)
  Sender: FDA-Public Use
  Company Number: 163-21880-13082925

PATIENT
  Age: 82 Year
  Sex: Female

DRUGS (19)
  1. REVLIMID (LENALIDOMIDE) (10 MILLIGRAM, CAPSULES) [Suspect]
     Indication: PLASMA CELL MYELOMA
     Route: 048
     Dates: start: 201307
  2. METOPROLOL (UNKNOWN) [Concomitant]
  3. HYDROCHLOROTHIAZIDE (TABLETS) [Concomitant]
  4. LISINOPRIL (TABLETS) (LISINOPRIL) [Concomitant]
  5. GABAPENTIN (CAPSULES) [Concomitant]
  6. AMITRIPTYLINE HCL (AMITRIPTYLINE HYDROCHLORIDE) (TABLETS) [Concomitant]
  7. COQ10 (UBIDECARENONE) (UNKNOWN) [Concomitant]
  8. VITAMIN E (TOCOPHEROL) (UNKNOWN) [Concomitant]
  9. DAILY VITAMIN-IRON (MULTIVITAMINS AND IRON) (TABLETS) [Concomitant]
  10. COMPLETE MULTIVITAMIN (TABLETS) [Concomitant]
  11. VELCADE (BORTEZOMIB) (UNKNOWN) [Concomitant]
  12. EVISTA (RALOXIFENE HYDROCHLORIDE) (TABLETS) [Concomitant]
  13. HUMALOG (INSULIN LISPRO) (UNKNOWN) [Concomitant]
  14. CALTRATE (CALCIUM CARBONATE) (UNKNOWN) [Concomitant]
  15. DEXAMETHASONE (UNKNOWN) [Concomitant]
  16. VICODIN (TABLETS) [Concomitant]
  17. LANTUS (INSULIN GLARGINE) (UNKNOWN) [Concomitant]
  18. CARVEDILOL (TABLETS) [Concomitant]
  19. PRAVASTATIN SODIUM (TABLETS) [Concomitant]

REACTIONS (3)
  - Orthostatic hypotension [None]
  - Fall [None]
  - Contusion [None]
